FAERS Safety Report 4902443-6 (Version None)
Quarter: 2006Q1

REPORT INFORMATION
  Report Type: 
  Country: None (occurrence: None)
  Receive Date: 20060202
  Receipt Date: 20060120
  Transmission Date: 20060701
  Serious: Yes (Other)
  Sender: FDA-Public Use
  Company Number: 2006009272

PATIENT
  Sex: Male

DRUGS (1)
  1. MINOXIDIL [Suspect]
     Indication: ALOPECIA
     Dosage: 1-2 ^PUSHES^ ONCE NIGHTLY, TOPICAL
     Route: 061

REACTIONS (3)
  - CHORIORETINOPATHY [None]
  - MACULAR OEDEMA [None]
  - STRESS [None]
